FAERS Safety Report 9192654 (Version 2)
Quarter: 2013Q2

REPORT INFORMATION
  Report Type: Spontaneous
  Country: JP (occurrence: JP)
  Receive Date: 20130327
  Receipt Date: 20130614
  Transmission Date: 20140414
  Serious: Yes (Other)
  Sender: FDA-Public Use
  Company Number: JP-ABBOTT-13P-087-1065317-00

PATIENT
  Age: 11 Year
  Sex: Male
  Weight: 40 kg

DRUGS (11)
  1. SEVOFLURANE [Suspect]
     Indication: ANAESTHESIA
     Dosage: INDUCTION 4%- MAINTAINED 1.5-3%
     Route: 055
  2. NITROUS OXIDE [Concomitant]
     Indication: INDUCTION OF ANAESTHESIA
     Dosage: 64-66%, APPROX 200L
     Route: 055
  3. NITROUS OXIDE [Concomitant]
     Indication: MAINTENANCE OF ANAESTHESIA
  4. SOLU-CORTEF [Concomitant]
     Indication: STEROID THERAPY
     Route: 042
  5. SOLU-CORTEF [Concomitant]
     Indication: ASTHMA PROPHYLAXIS
  6. VOLTAREN [Concomitant]
     Indication: PROCEDURAL PAIN
     Route: 054
  7. OXYGEN [Concomitant]
     Indication: INDUCTION OF ANAESTHESIA
     Dosage: APPROX 220L
     Route: 055
  8. OXYGEN [Concomitant]
     Indication: MAINTENANCE OF ANAESTHESIA
  9. ACETAMINOPHEN [Concomitant]
     Indication: PAIN MANAGEMENT
     Route: 054
  10. FOSMICIN [Concomitant]
     Indication: ANTIBIOTIC THERAPY
     Route: 042
  11. RINGER ACETATE [Concomitant]
     Indication: PRODUCT USED FOR UNKNOWN INDICATION

REACTIONS (1)
  - Rhabdomyolysis [Recovered/Resolved]
